FAERS Safety Report 7238659-6 (Version None)
Quarter: 2011Q1

REPORT INFORMATION
  Report Type: 
  Country: None (occurrence: None)
  Receive Date: 20110121
  Receipt Date: 20110117
  Transmission Date: 20110831
  Serious: Yes (Death, Other)
  Sender: FDA-Public Use
  Company Number: PHHY2011CN03919

PATIENT

DRUGS (2)
  1. TACROLIMUS [Suspect]
     Dosage: 5 TO 10 NG/ML
  2. METHYLPREDNISOLONE ACETATE [Suspect]

REACTIONS (13)
  - ASCITES [None]
  - PORTAL VEIN THROMBOSIS [None]
  - ASPARTATE AMINOTRANSFERASE ABNORMAL [None]
  - VARICES OESOPHAGEAL [None]
  - LIVER FUNCTION TEST ABNORMAL [None]
  - GASTROINTESTINAL HAEMORRHAGE [None]
  - SPLENOMEGALY [None]
  - HYPERSPLENISM [None]
  - EPSTEIN-BARR VIRUS INFECTION [None]
  - CYTOMEGALOVIRUS INFECTION [None]
  - HYPOPROTEINAEMIA [None]
  - HAEMORRHAGE [None]
  - ALANINE AMINOTRANSFERASE ABNORMAL [None]
